FAERS Safety Report 11245079 (Version 2)
Quarter: 2015Q3

REPORT INFORMATION
  Report Type: Spontaneous
  Country: ES (occurrence: ES)
  Receive Date: 20150707
  Receipt Date: 20150810
  Transmission Date: 20151125
  Serious: Yes (Other)
  Sender: FDA-Public Use
  Company Number: ES-BAYER-2015-370605

PATIENT
  Age: 68 Year
  Sex: Male

DRUGS (5)
  1. THROMBOCID [GUAIAZULENE,SODIUM PENTOSAN POLYSULFATE,THYMOL] [Concomitant]
  2. ADIRO 100 [Suspect]
     Active Substance: ASPIRIN
     Indication: ANTICOAGULANT THERAPY
     Dosage: UNK
     Dates: start: 2011
  3. TRANGOREX [Concomitant]
     Active Substance: AMIODARONE HYDROCHLORIDE
  4. MICARDIS [Concomitant]
     Active Substance: TELMISARTAN
  5. RENNIE [Concomitant]
     Active Substance: MAGNESIUM CARBONATE

REACTIONS (2)
  - Haemorrhage subcutaneous [None]
  - Cardiovascular disorder [None]

NARRATIVE: CASE EVENT DATE: 2011
